FAERS Safety Report 23220107 (Version 1)
Quarter: 2023Q4

REPORT INFORMATION
  Report Type: Spontaneous
  Country: US (occurrence: US)
  Receive Date: 20231123
  Receipt Date: 20231123
  Transmission Date: 20240110
  Serious: Yes (Other)
  Sender: FDA-Public Use
  Company Number: US-AUROBINDO-AUR-APL-2023-073720

PATIENT
  Age: 43 Year
  Sex: Female

DRUGS (2)
  1. DAPTOMYCIN [Suspect]
     Active Substance: DAPTOMYCIN
     Indication: Evidence based treatment
     Dosage: 6 MILLIGRAM/KILOGRAM
     Route: 042
  2. ERTAPENEM [Suspect]
     Active Substance: ERTAPENEM
     Indication: Evidence based treatment
     Dosage: 1 GRAM, DAILY
     Route: 042

REACTIONS (1)
  - Drug ineffective [Unknown]
